FAERS Safety Report 8371499-3 (Version None)
Quarter: 2012Q2

REPORT INFORMATION
  Report Type: 
  Country: None (occurrence: None)
  Receive Date: 20120518
  Receipt Date: 20120508
  Transmission Date: 20120825
  Serious: No
  Sender: FDA-Public Use
  Company Number: US-ASTRAZENECA-2012SE29587

PATIENT
  Sex: Female

DRUGS (2)
  1. FASLODEX [Suspect]
     Indication: BREAST CANCER
     Dosage: 250 DOSE
     Route: 030
  2. FASLODEX [Suspect]
     Dosage: 500 DOSE MONTH
     Route: 030

REACTIONS (1)
  - NODULE [None]
